FAERS Safety Report 24698770 (Version 6)
Quarter: 2024Q4

REPORT INFORMATION
  Report Type: Report from Study
  Country: JP (occurrence: JP)
  Receive Date: 20241205
  Receipt Date: 20241231
  Transmission Date: 20250115
  Serious: No
  Sender: ABBVIE
  Company Number: JP-ABBVIE-5948798

PATIENT
  Age: 64 Year
  Sex: Female

DRUGS (2)
  1. FOSCARBIDOPA\FOSLEVODOPA [Suspect]
     Active Substance: FOSCARBIDOPA\FOSLEVODOPA
     Indication: Parkinson^s disease
     Dosage: LARGER: 0.36 ML/H
     Route: 058
     Dates: start: 20240910
  2. FOSCARBIDOPA\FOSLEVODOPA [Suspect]
     Active Substance: FOSCARBIDOPA\FOSLEVODOPA
     Dosage: LARGER: 0.38 ML/H, ED: 0.25 ML
     Route: 058
     Dates: start: 20241007

REACTIONS (19)
  - Mobility decreased [Not Recovered/Not Resolved]
  - Infusion site reaction [Not Recovered/Not Resolved]
  - Infusion site reaction [Unknown]
  - Mobility decreased [Recovered/Resolved]
  - Fatigue [Unknown]
  - Vision blurred [Unknown]
  - Confusional state [Unknown]
  - Muscle tightness [Unknown]
  - Malaise [Unknown]
  - Therapeutic product effect incomplete [Unknown]
  - Somnolence [Unknown]
  - Condition aggravated [Unknown]
  - Brain fog [Recovered/Resolved]
  - Infusion site reaction [Unknown]
  - Infusion site induration [Unknown]
  - Infusion site reaction [Not Recovered/Not Resolved]
  - Chest X-ray abnormal [Unknown]
  - Infusion site infection [Recovering/Resolving]
  - Faecaloma [Unknown]

NARRATIVE: CASE EVENT DATE: 20240101
